FAERS Safety Report 6811505-8 (Version None)
Quarter: 2010Q2

REPORT INFORMATION
  Report Type: 
  Country: None (occurrence: None)
  Receive Date: 20100625
  Receipt Date: 20100609
  Transmission Date: 20101027
  Serious: Yes (Other)
  Sender: FDA-Public Use
  Company Number: GB-DEXPHARM-20100638

PATIENT
  Age: 62 Year
  Sex: Female

DRUGS (2)
  1. PERIOCHIP [Suspect]
     Indication: PERIODONTAL DISEASE
     Dosage: 2.5 MG MILLGRAM(S) SEP. DOSAGES / INTERVAL: 2 IN 1 DAY, DENTAL
     Route: 004
     Dates: start: 20100510, end: 20100510
  2. SLO-PHYLLIN [Concomitant]

REACTIONS (9)
  - BURNING SENSATION [None]
  - CONVULSION [None]
  - DYSPNOEA [None]
  - ERYTHEMA [None]
  - PRURITUS GENERALISED [None]
  - PYREXIA [None]
  - SYNCOPE [None]
  - THROAT TIGHTNESS [None]
  - URTICARIA [None]
